FAERS Safety Report 24421486 (Version 2)
Quarter: 2024Q4

REPORT INFORMATION
  Report Type: Spontaneous
  Country: IR (occurrence: IR)
  Receive Date: 20241010
  Receipt Date: 20241112
  Transmission Date: 20250114
  Serious: Yes (Other)
  Sender: SANOFI AVENTIS
  Company Number: IR-MLMSERVICE-20151015-0049391-1

PATIENT
  Age: 52 Year
  Sex: Male

DRUGS (6)
  1. OXALIPLATIN [Suspect]
     Active Substance: OXALIPLATIN
     Indication: Chemotherapy
     Dosage: 130 MG/M TWICE A DAY TO 3 CYCLES
     Route: 042
  2. CAPECITABINE [Suspect]
     Active Substance: CAPECITABINE
     Dosage: 1000 MG/M EVERY 3 WEEKS FOR NEARLY 8 MONTHS
     Route: 048
  3. CAPECITABINE [Suspect]
     Active Substance: CAPECITABINE
     Dosage: 1000 MG/M TWICE DAILY TO 3 CYCLICES
  4. IRINOTECAN [Suspect]
     Active Substance: IRINOTECAN
  5. BEVACIZUMAB [Concomitant]
     Active Substance: BEVACIZUMAB
     Dosage: EVERY 3 WEEKS FOR NEARLY 8 MONTHS
     Route: 042
  6. XELODA [Concomitant]
     Active Substance: CAPECITABINE

REACTIONS (1)
  - Chronic myeloid leukaemia [Recovering/Resolving]
